FAERS Safety Report 8851800 (Version 1)
Quarter: 2012Q4

REPORT INFORMATION
  Report Type: 
  Country: US (occurrence: US)
  Receive Date: 20121022
  Receipt Date: 20121022
  Transmission Date: 20130627
  Serious: Yes (Other)
  Sender: FDA-Public Use
  Company Number: US-BAYER-2012-109393

PATIENT
  Age: 34 Year
  Sex: Male
  Weight: 109 kg

DRUGS (29)
  1. TRASYLOL [Suspect]
     Indication: ANEURYSM REPAIR
     Dosage: Test dose 1mL; 200 mL bypass prime
     Dates: start: 20070328, end: 20070328
  2. TRASYLOL [Suspect]
     Indication: ANEURYSM REPAIR
     Dosage: Loading dose: Bolus followed by 50mL/hr (679.57mL total)
     Dates: start: 20070328, end: 20070328
  3. CLONIDINE [Concomitant]
     Dosage: 0.2 mg, BID
     Route: 048
  4. NICARDIPINE [Concomitant]
     Dosage: 80 mg, TID
     Route: 048
  5. METOPROLOL [Concomitant]
  6. CEFAZOLIN [Concomitant]
     Dosage: UNK
     Dates: start: 20070328, end: 20070328
  7. ETOMIDATE [Concomitant]
     Dosage: UNK
     Dates: start: 20070328, end: 20070328
  8. FENTANYL [Concomitant]
     Dosage: UNK
     Dates: start: 20070328, end: 20070328
  9. MIDAZOLAM [Concomitant]
     Dosage: UNK
     Dates: start: 20070328, end: 20070328
  10. PROTAMINE [Concomitant]
     Dosage: UNK
     Dates: start: 20070328, end: 20070328
  11. VECURONIUM [Concomitant]
     Dosage: UNK
     Dates: start: 20070328, end: 20070328
  12. EPINEPHRINE [Concomitant]
     Dosage: UNK
     Dates: start: 20070328
  13. PHENYLEPHRINE [Concomitant]
     Dosage: UNK
     Dates: start: 20070328
  14. NOREPINEPHRINE [Concomitant]
     Dosage: UNK
     Dates: start: 20070328
  15. VASOPRESSIN [Concomitant]
     Dosage: UNK
     Dates: start: 20070328
  16. HYDROCORTISONE [Concomitant]
     Dosage: UNK
     Dates: start: 20070328, end: 20070328
  17. CEFOXITIN [Concomitant]
     Dosage: UNK
     Dates: start: 20070328, end: 20070328
  18. SODIUM BICARBONATE [Concomitant]
     Dosage: UNK
     Dates: start: 20070328, end: 20070328
  19. HEPARIN [Concomitant]
     Dosage: UNK
     Dates: start: 20070328, end: 20070328
  20. MANNITOL [Concomitant]
     Dosage: UNK
     Dates: start: 20070328, end: 20070328
  21. INSULIN [Concomitant]
     Dosage: UNK
     Dates: start: 20070328, end: 20070328
  22. CALCIUM CHLORIDE [Concomitant]
     Dosage: UNK
     Dates: start: 20070328, end: 20070328
  23. POTASSIUM CHLORIDE [Concomitant]
     Dosage: UNK
     Dates: start: 20070328, end: 20070328
  24. CELL SAVER [Concomitant]
     Dosage: UNK
     Dates: start: 20070328
  25. CRYOPRECIPITATE [Concomitant]
     Dosage: UNK
     Dates: start: 20070328
  26. PLASMA [Concomitant]
     Dosage: UNK
     Dates: start: 20070328
  27. PACKED RED BLOOD CELLS [Concomitant]
     Dosage: UNK
     Dates: start: 20070328
  28. PLATELETS, HUMAN BLOOD [Concomitant]
     Dosage: UNK
     Dates: start: 20070328
  29. FACTOR VII [Concomitant]
     Dosage: UNK
     Dates: start: 20070328

REACTIONS (3)
  - Renal failure acute [None]
  - Renal failure [None]
  - Respiratory failure [None]
